FAERS Safety Report 15677880 (Version 1)
Quarter: 2018Q4

REPORT INFORMATION
  Report Type: Spontaneous
  Country: US (occurrence: US)
  Receive Date: 20181130
  Receipt Date: 20181130
  Transmission Date: 20190205
  Serious: Yes (Hospitalization)
  Sender: FDA-Public Use
  Company Number: US-INDIVIOR LIMITED-INDV-115946-2018

PATIENT
  Age: 42 Year
  Sex: Male

DRUGS (11)
  1. ACETAMINOPHEN. [Concomitant]
     Active Substance: ACETAMINOPHEN
     Indication: PRODUCT USED FOR UNKNOWN INDICATION
     Dosage: ONE GRAM EVERY 6 HOURS
     Route: 065
  2. PROPOFOL. [Concomitant]
     Active Substance: PROPOFOL
     Indication: SEDATIVE THERAPY
     Dosage: 10 TO 20 MG BOLUS
     Route: 065
  3. MEPIVACAINE [Concomitant]
     Active Substance: MEPIVACAINE\MEPIVACAINE HYDROCHLORIDE
     Indication: NERVE BLOCK
     Dosage: 1.5% MEPIVACAINE 20 ML
     Route: 051
  4. KETAMINE [Concomitant]
     Active Substance: KETAMINE
     Indication: SEDATIVE THERAPY
     Dosage: 10 MG BOLUS
     Route: 065
  5. TORADOL [Concomitant]
     Active Substance: KETOROLAC TROMETHAMINE
     Indication: PRODUCT USED FOR UNKNOWN INDICATION
     Dosage: 30 MG EVERY 6 HOURS FOR 24 HOURS
     Route: 065
  6. BUPRENORPHINE/NALOXONE 8 MG [Suspect]
     Active Substance: BUPRENORPHINE\NALOXONE
     Indication: DRUG USE DISORDER
     Dosage: 8 MG, BID
     Route: 060
  7. BUPRENORPHINE/NALOXONE 8 MG [Suspect]
     Active Substance: BUPRENORPHINE\NALOXONE
     Dosage: 8 MG, INCREASED TO EVERY 8 HOURS (THREE TIMES A DAY)
     Route: 060
  8. BUPIVACAINE. [Concomitant]
     Active Substance: BUPIVACAINE
     Indication: NERVE BLOCK
     Dosage: 0.5% BUPIVACAINE 15 ML
     Route: 065
  9. NAPROXEN. [Concomitant]
     Active Substance: NAPROXEN
     Indication: PRODUCT USED FOR UNKNOWN INDICATION
     Dosage: 500 MG DAILY
     Route: 065
  10. ALCOHOL. [Suspect]
     Active Substance: ALCOHOL
     Indication: PRODUCT USED FOR UNKNOWN INDICATION
     Dosage: UNK, WEEKLY
     Route: 048
  11. ROPIVACAINE. [Concomitant]
     Active Substance: ROPIVACAINE HYDROCHLORIDE
     Indication: NERVE BLOCK
     Dosage: 0.2%
     Route: 065

REACTIONS (7)
  - Condition aggravated [Recovered/Resolved]
  - Alcohol withdrawal syndrome [Unknown]
  - Rotator cuff syndrome [Recovered/Resolved]
  - Inappropriate schedule of product administration [Not Recovered/Not Resolved]
  - Hypoaesthesia [Recovered/Resolved]
  - Drug dependence [Recovered/Resolved]
  - Procedural pain [Recovered/Resolved]
